FAERS Safety Report 5814603-0 (Version None)
Quarter: 2008Q3

REPORT INFORMATION
  Report Type: 
  Country: None (occurrence: None)
  Receive Date: 20080718
  Receipt Date: 20071106
  Transmission Date: 20090109
  Serious: No
  Sender: FDA-Public Use
  Company Number: US-KINGPHARMUSA00001-K200701432

PATIENT

DRUGS (4)
  1. LEVOXYL [Suspect]
     Dosage: 88 MCG, TUESDAYS AND SATURDAYS
     Route: 048
     Dates: start: 20010101, end: 20071101
  2. LEVOXYL [Suspect]
     Dosage: 75 MCG, REMAINING DAYS
     Route: 048
     Dates: start: 20010101, end: 20071101
  3. LEVOXYL [Suspect]
     Dosage: 88 MCG, TUESDAYS, THURSDAYS, SATURDAYS
     Route: 048
     Dates: start: 20071101
  4. LEVOXYL [Suspect]
     Dosage: 75 MCG, REMAINING DAYS
     Route: 048
     Dates: start: 20071101

REACTIONS (6)
  - ASTHENIA [None]
  - BLOOD THYROID STIMULATING HORMONE ABNORMAL [None]
  - DRUG EFFECT DECREASED [None]
  - MENSTRUATION IRREGULAR [None]
  - TRICHORRHEXIS [None]
  - WEIGHT INCREASED [None]
